FAERS Safety Report 4980774-1 (Version None)
Quarter: 2006Q2

REPORT INFORMATION
  Report Type: 
  Country: None (occurrence: None)
  Receive Date: 20060424
  Receipt Date: 20060412
  Transmission Date: 20061013
  Serious: Yes (Other)
  Sender: FDA-Public Use
  Company Number: MY-AVENTIS-200612218EU

PATIENT

DRUGS (1)
  1. ENOXAPARIN SODIUM [Suspect]

REACTIONS (1)
  - CEREBRAL HAEMORRHAGE NEONATAL [None]
